FAERS Safety Report 25478917 (Version 1)
Quarter: 2025Q2

REPORT INFORMATION
  Report Type: Spontaneous
  Country: DE (occurrence: DE)
  Receive Date: 20250625
  Receipt Date: 20250625
  Transmission Date: 20250717
  Serious: Yes (Life-Threatening, Hospitalization, Other)
  Sender: UCB
  Company Number: None

PATIENT
  Age: 65 Year
  Sex: Male
  Weight: 102 kg

DRUGS (7)
  1. NEUPRO [Suspect]
     Active Substance: ROTIGOTINE
     Indication: Restless legs syndrome
     Route: 062
  2. NEUPRO [Suspect]
     Active Substance: ROTIGOTINE
     Route: 062
  3. EDOXABAN TOSYLATE [Concomitant]
     Active Substance: EDOXABAN TOSYLATE
     Indication: Product used for unknown indication
     Dates: start: 20220117
  4. RAMIPRIL STADA [Concomitant]
     Indication: Product used for unknown indication
     Dates: start: 20220117
  5. TORSEMIDE [Concomitant]
     Active Substance: TORSEMIDE
     Indication: Product used for unknown indication
     Dates: start: 20230301
  6. TAMSULOSIN [Concomitant]
     Active Substance: TAMSULOSIN
     Indication: Product used for unknown indication
     Dates: start: 20250314
  7. TADALAFIL AL [Concomitant]
     Indication: Product used for unknown indication
     Dates: start: 20250314

REACTIONS (9)
  - Restlessness [Unknown]
  - Malaise [Unknown]
  - Aggression [Unknown]
  - Agitation [Unknown]
  - Ventricular fibrillation [Unknown]
  - Cardiac procedure complication [Unknown]
  - Product quality issue [Unknown]
  - Product ineffective [Unknown]
  - Therapeutic product effect decreased [Unknown]

NARRATIVE: CASE EVENT DATE: 20250101
